FAERS Safety Report 9819576 (Version 2)
Quarter: 2014Q1

REPORT INFORMATION
  Report Type: Spontaneous
  Country: DK (occurrence: DK)
  Receive Date: 20140115
  Receipt Date: 20140115
  Transmission Date: 20141002
  Serious: Yes (Disabling)
  Sender: FDA-Public Use
  Company Number: DK-GE HEALTHCARE MEDICAL DIAGNOSTICS-OSCN-NO-0911S-0487

PATIENT
  Age: 66 Year
  Sex: Male
  Weight: 83 kg

DRUGS (16)
  1. GADOLINIUM (UNSPECIFIED) [Suspect]
     Indication: RENAL TRANSPLANT
     Dosage: DOSE NOT REPORTED
     Route: 042
     Dates: start: 20050107, end: 20050107
  2. GADOLINIUM (UNSPECIFIED) [Suspect]
     Indication: DIAGNOSTIC PROCEDURE
  3. ATACAND [Concomitant]
     Route: 048
  4. EPREX [Concomitant]
     Route: 042
  5. EPREX [Concomitant]
     Route: 042
  6. IMODIUM [Concomitant]
     Route: 048
  7. MANDOLGIN [Concomitant]
     Route: 048
  8. NEXIUM [Concomitant]
     Route: 048
  9. NORVASC [Concomitant]
     Route: 048
  10. PANODIL [Concomitant]
     Route: 048
  11. PHOS-EX [Concomitant]
     Route: 048
  12. RENAGEL [Concomitant]
     Route: 048
  13. RESONIUM [Concomitant]
     Route: 054
  14. VENOFER [Concomitant]
     Route: 042
  15. VIBEDEN [Concomitant]
     Route: 030
  16. ZYRTEC [Concomitant]
     Route: 048

REACTIONS (3)
  - Respiratory failure [Not Recovered/Not Resolved]
  - Pulmonary hypertension [Not Recovered/Not Resolved]
  - Nephrogenic systemic fibrosis [Not Recovered/Not Resolved]
